FAERS Safety Report 21967930 (Version 1)
Quarter: 2023Q1

REPORT INFORMATION
  Report Type: Report from Study
  Country: CA (occurrence: CA)
  Receive Date: 20230208
  Receipt Date: 20230208
  Transmission Date: 20230418
  Serious: Yes (Other)
  Sender: FDA-Public Use
  Company Number: CA-BAUSCH-BL-2022-020933

PATIENT
  Sex: Female
  Weight: 108.84 kg

DRUGS (4)
  1. CONTRAVE [Suspect]
     Active Substance: BUPROPION HYDROCHLORIDE\NALTREXONE HYDROCHLORIDE
     Indication: Weight control
     Dosage: 90/8 MG (1 DOSAGE FORMS,1 IN 1 D)
     Route: 048
     Dates: start: 2022, end: 2022
  2. CONTRAVE [Suspect]
     Active Substance: BUPROPION HYDROCHLORIDE\NALTREXONE HYDROCHLORIDE
     Dosage: 90/8 MG, 2 TAB IN MORNING, 2 TAB IN EVENING
     Route: 048
     Dates: start: 20220715, end: 2022
  3. CONTRAVE [Suspect]
     Active Substance: BUPROPION HYDROCHLORIDE\NALTREXONE HYDROCHLORIDE
     Dosage: 90/8 MG, 2 TAB IN AM, 2 TAB IN PM, PATIENT STOPPED FOR 2 DAYS AND AGAIN RESTARTED AT 4 TABS/DAY
     Route: 048
     Dates: start: 2022, end: 20221110
  4. ADVIL [Concomitant]
     Active Substance: IBUPROFEN
     Indication: Endometriosis
     Dosage: 1 IN 1 D
     Route: 048

REACTIONS (14)
  - Cholelithiasis [Not Recovered/Not Resolved]
  - Muscle twitching [Recovered/Resolved]
  - Condition aggravated [Recovered/Resolved]
  - Dyspepsia [Not Recovered/Not Resolved]
  - Chest pain [Not Recovered/Not Resolved]
  - Motion sickness [Unknown]
  - Nausea [Unknown]
  - Fatigue [Unknown]
  - Abdominal pain upper [Not Recovered/Not Resolved]
  - Therapeutic response unexpected [Unknown]
  - Treatment noncompliance [Unknown]
  - Therapy cessation [Unknown]
  - Product dose omission in error [Unknown]
  - Drug titration error [Unknown]

NARRATIVE: CASE EVENT DATE: 20220101
